FAERS Safety Report 7000786-6 (Version None)
Quarter: 2010Q3

REPORT INFORMATION
  Report Type: 
  Country: None (occurrence: None)
  Receive Date: 20100920
  Receipt Date: 20090720
  Transmission Date: 20110219
  Serious: Yes (Other)
  Sender: FDA-Public Use
  Company Number: US-ASTRAZENECA-2007UW06185

PATIENT
  Age: 659 Month
  Sex: Male
  Weight: 82.1 kg

DRUGS (7)
  1. SEROQUEL [Suspect]
     Route: 048
     Dates: start: 20050120
  2. LITHIUM CARBONATE [Concomitant]
     Route: 048
     Dates: start: 20040406
  3. TRIAMCINOLONE [Concomitant]
     Dates: start: 20040614
  4. HYDROCHLOROT [Concomitant]
     Route: 048
     Dates: start: 20050425
  5. NIFEDIPINE [Concomitant]
     Route: 048
     Dates: start: 20050505
  6. LIPITOR [Concomitant]
     Route: 048
     Dates: start: 20060213
  7. SYNTHROID [Concomitant]
     Route: 048
     Dates: start: 20050505

REACTIONS (3)
  - DIABETIC KETOACIDOSIS [None]
  - PANCREATITIS [None]
  - TYPE 2 DIABETES MELLITUS [None]
